FAERS Safety Report 25717030 (Version 1)
Quarter: 2025Q3

REPORT INFORMATION
  Report Type: Spontaneous
  Country: US (occurrence: US)
  Receive Date: 20250822
  Receipt Date: 20250822
  Transmission Date: 20251020
  Serious: No
  Sender: SANOFI AVENTIS
  Company Number: US-SANOFI-02624523

PATIENT
  Age: 62 Year
  Sex: Male

DRUGS (21)
  1. DUPIXENT [Suspect]
     Active Substance: DUPILUMAB
     Indication: Skin disorder
     Dosage: 300 MG, QOW
     Dates: start: 202503
  2. AMLODIPINE BESYLATE [Concomitant]
     Active Substance: AMLODIPINE BESYLATE
     Dosage: 10 MG, QD
  3. HYDROCHLOROTHIAZIDE [Concomitant]
     Active Substance: HYDROCHLOROTHIAZIDE
     Dosage: 25 MG, QD
  4. GLIMEPIRIDE [Concomitant]
     Active Substance: GLIMEPIRIDE
     Dosage: 4 MG, BID
  5. JARDIANCE [Concomitant]
     Active Substance: EMPAGLIFLOZIN
  6. FENOFIBRATE [Concomitant]
     Active Substance: FENOFIBRATE
  7. ESCITALOPRAM OXALATE [Concomitant]
     Active Substance: ESCITALOPRAM OXALATE
  8. BUPROPION HYDROCHLORIDE [Concomitant]
     Active Substance: BUPROPION HYDROCHLORIDE
  9. TADALAFIL [Concomitant]
     Active Substance: TADALAFIL
  10. ANASTROZOLE [Concomitant]
     Active Substance: ANASTROZOLE
  11. FINASTERIDE [Concomitant]
     Active Substance: FINASTERIDE
  12. TESTOSTERONE [Concomitant]
     Active Substance: TESTOSTERONE
  13. ALLOPURINOL [Concomitant]
     Active Substance: ALLOPURINOL
  14. CLOBETASOL PROPIONATE [Concomitant]
     Active Substance: CLOBETASOL PROPIONATE
  15. CYANOCOBALAMIN [Concomitant]
     Active Substance: CYANOCOBALAMIN
  16. ASPIRIN [Concomitant]
     Active Substance: ASPIRIN
  17. METAMUCIL [Concomitant]
     Active Substance: PLANTAGO SEED
  18. MELATONIN [Concomitant]
     Active Substance: MELATONIN
  19. LINZESS [Concomitant]
     Active Substance: LINACLOTIDE
  20. OLMESARTAN [Concomitant]
     Active Substance: OLMESARTAN
     Dosage: 40 MG, QD
  21. BIFIDOBACTERIUM ANIMALIS LACTIS [Concomitant]
     Active Substance: BIFIDOBACTERIUM ANIMALIS LACTIS

REACTIONS (3)
  - Injection site swelling [Unknown]
  - Exposure via skin contact [Unknown]
  - Accidental exposure to product [Unknown]

NARRATIVE: CASE EVENT DATE: 20250101
